FAERS Safety Report 8426743-0 (Version None)
Quarter: 2012Q2

REPORT INFORMATION
  Report Type: 
  Country: None (occurrence: None)
  Receive Date: 20120611
  Receipt Date: 20120604
  Transmission Date: 20120825
  Serious: Yes (Hospitalization)
  Sender: FDA-Public Use
  Company Number: PHHY2012FR048710

PATIENT
  Sex: Female

DRUGS (10)
  1. ZOLPIDEM [Concomitant]
  2. TROSPIUM CHLORIDE [Concomitant]
  3. ATORVASTATIN [Concomitant]
  4. FOLIC ACID [Concomitant]
  5. POLYETHYLENE GLYCOL [Concomitant]
  6. DILTIAZEM HCL [Suspect]
     Dosage: 30 MG, DAILY
     Dates: start: 19990101, end: 20120427
  7. VALSARTAN [Suspect]
     Dosage: 1 DF, DAILY
     Dates: start: 20000101, end: 20120427
  8. FUROSEMIDE [Suspect]
     Dosage: 40 MG, DAILY
     Dates: start: 20120301, end: 20120427
  9. ALDACTONE [Suspect]
     Dosage: 1 DF, UNK
     Dates: start: 20000101, end: 20120427
  10. DEBRIDAT [Concomitant]

REACTIONS (5)
  - HYPERKALAEMIA [None]
  - OEDEMA PERIPHERAL [None]
  - WEIGHT INCREASED [None]
  - RENAL FAILURE ACUTE [None]
  - SINUS BRADYCARDIA [None]
